FAERS Safety Report 5941444-6 (Version None)
Quarter: 2008Q4

REPORT INFORMATION
  Report Type: 
  Country: None (occurrence: None)
  Receive Date: 20081103
  Receipt Date: 20081103
  Transmission Date: 20090506
  Serious: Yes (Disabling)
  Sender: FDA-Public Use
  Company Number: None

PATIENT
  Age: 17 Year
  Sex: Female
  Weight: 57.6068 kg

DRUGS (1)
  1. MINIMED PARADIGM 522 INSULIN PUMP [Suspect]

REACTIONS (7)
  - ASTHENIA [None]
  - BLOOD GLUCOSE DECREASED [None]
  - BLOOD GLUCOSE FLUCTUATION [None]
  - DRUG ADMINISTRATION ERROR [None]
  - FATIGUE [None]
  - INCORRECT DOSE ADMINISTERED [None]
  - VOMITING [None]
